FAERS Safety Report 16166349 (Version 1)
Quarter: 2019Q2

REPORT INFORMATION
  Report Type: Report from Study
  Country: CA (occurrence: CA)
  Receive Date: 20190406
  Receipt Date: 20190406
  Transmission Date: 20190711
  Serious: No
  Sender: FDA-Public Use
  Company Number: CA-ROCHE-2294320

PATIENT
  Age: 50 Year
  Sex: Female
  Weight: 105 kg

DRUGS (3)
  1. OCREVUS [Suspect]
     Active Substance: OCRELIZUMAB
     Indication: MULTIPLE SCLEROSIS
     Dosage: INITIAL INFUSION; 300MG- DAY 0 AND 14, THEN 600 MG Q 6 MONTH
     Route: 042
     Dates: start: 20190326
  2. MODAFINIL. [Concomitant]
     Active Substance: MODAFINIL
     Route: 048
  3. COVERSYL [Concomitant]
     Active Substance: PERINDOPRIL
     Route: 048
     Dates: start: 201705

REACTIONS (2)
  - Infusion related reaction [Recovered/Resolved]
  - Nasopharyngitis [Not Recovered/Not Resolved]

NARRATIVE: CASE EVENT DATE: 20190326
